FAERS Safety Report 8739232 (Version 2)
Quarter: 2012Q4

REPORT INFORMATION
  Report Type: Report from Study
  Country: CA (occurrence: CA)
  Receive Date: 20120823
  Receipt Date: 20121019
  Transmission Date: 20130627
  Serious: Yes (Other)
  Sender: FDA-Public Use
  Company Number: CA-JNJFOC-20120806887

PATIENT
  Age: 53 None
  Sex: Female
  Weight: 86 kg

DRUGS (4)
  1. REMICADE [Suspect]
     Indication: COLITIS ULCERATIVE
     Route: 042
     Dates: start: 20120113
  2. REMICADE [Suspect]
     Indication: COLITIS ULCERATIVE
     Dosage: 5th infusion
     Route: 042
     Dates: start: 20120618
  3. IMURAN [Concomitant]
     Dosage: 4 tablets
     Route: 048
  4. ALL OTHER THERAPEUTICS [Concomitant]
     Route: 065

REACTIONS (5)
  - Arrhythmia [Not Recovered/Not Resolved]
  - Syncope [Not Recovered/Not Resolved]
  - Contusion [Not Recovered/Not Resolved]
  - Palpitations [Not Recovered/Not Resolved]
  - Rash [Not Recovered/Not Resolved]
